FAERS Safety Report 16715844 (Version 3)
Quarter: 2019Q4

REPORT INFORMATION
  Report Type: Spontaneous
  Country: US (occurrence: US)
  Receive Date: 20190819
  Receipt Date: 20191010
  Transmission Date: 20200122
  Serious: Yes (Other)
  Sender: FDA-Public Use
  Company Number: US-PFIZER INC-2019349271

PATIENT
  Age: 68 Year

DRUGS (1)
  1. ESTRING [Suspect]
     Active Substance: ESTRADIOL
     Dosage: 2 MG (7.5MCG/24HR)

REACTIONS (3)
  - Breast cancer [Unknown]
  - Burning sensation [Unknown]
  - Vulvovaginal dryness [Unknown]
